FAERS Safety Report 12795639 (Version 1)
Quarter: 2016Q3

REPORT INFORMATION
  Report Type: Spontaneous
  Country: IT (occurrence: IT)
  Receive Date: 20160929
  Receipt Date: 20160929
  Transmission Date: 20161109
  Serious: Yes (Hospitalization)
  Sender: FDA-Public Use
  Company Number: IT-SA-2016SA176967

PATIENT
  Age: 68 Year
  Sex: Male

DRUGS (10)
  1. PROZIN [Suspect]
     Active Substance: CHLORPROMAZINE HYDROCHLORIDE
     Route: 048
     Dates: start: 20130124, end: 20130124
  2. LOBIVON [Concomitant]
     Active Substance: NEBIVOLOL HYDROCHLORIDE
     Route: 048
  3. CYMBALTA [Suspect]
     Active Substance: DULOXETINE HYDROCHLORIDE
     Dosage: 60 MG TABLET
     Route: 048
     Dates: start: 20130124, end: 20130124
  4. ANAFRANIL [Concomitant]
     Active Substance: CLOMIPRAMINE HYDROCHLORIDE
     Dosage: 75 MG PROLONGED RELEASE TABLET
     Route: 048
  5. SULAMID [Concomitant]
     Active Substance: AMISULPRIDE
     Dosage: 50 MG TABLET
     Route: 048
  6. DELORAZEPAM [Suspect]
     Active Substance: DELORAZEPAM
     Dosage: 1 MG/ML
     Route: 048
     Dates: start: 20130124, end: 20130124
  7. ZESTORETIC [Concomitant]
     Active Substance: HYDROCHLOROTHIAZIDE\LISINOPRIL
     Dosage: 20 MG+12.5 MG TABLET
     Route: 048
  8. AMITRIPTYLINE [Suspect]
     Active Substance: AMITRIPTYLINE
     Dosage: 25 MG TABLET
     Route: 048
     Dates: start: 20130124, end: 20130124
  9. DAPAROX [Suspect]
     Active Substance: PAROXETINE HYDROCHLORIDE
     Dosage: 20 MG TABLET
     Route: 048
     Dates: start: 20130124, end: 20130124
  10. ZOLPIDEM TARTRATE. [Suspect]
     Active Substance: ZOLPIDEM TARTRATE
     Dosage: 10 MG TABLET
     Route: 048
     Dates: start: 20130124, end: 20130124

REACTIONS (5)
  - Sopor [Recovered/Resolved]
  - Drug abuse [Unknown]
  - Bradycardia [Recovered/Resolved]
  - Depressed level of consciousness [Recovered/Resolved]
  - Suicide attempt [Recovered/Resolved]

NARRATIVE: CASE EVENT DATE: 20130124
